FAERS Safety Report 8436540-8 (Version None)
Quarter: 2012Q2

REPORT INFORMATION
  Report Type: 
  Country: None (occurrence: None)
  Receive Date: 20120614
  Receipt Date: 20120611
  Transmission Date: 20120825
  Serious: Yes (Congenital Anomaly)
  Sender: FDA-Public Use
  Company Number: DK-GLAXOSMITHKLINE-B0807970A

PATIENT
  Sex: Female

DRUGS (5)
  1. PROPYL-THIOURACIL [Concomitant]
     Indication: NAUSEA
  2. ZOFRAN [Suspect]
     Indication: NAUSEA
     Dosage: 1TAB PER DAY
     Route: 064
  3. METHIMAZOLE [Concomitant]
     Indication: NAUSEA
  4. PRIMPERAN TAB [Concomitant]
     Indication: NAUSEA
  5. POSTAFEN [Concomitant]
     Indication: NAUSEA

REACTIONS (2)
  - HEMIPLEGIA [None]
  - FOETAL EXPOSURE DURING PREGNANCY [None]
